FAERS Safety Report 21177648 (Version 1)
Quarter: 2022Q3

REPORT INFORMATION
  Report Type: Report from Study
  Country: FR (occurrence: FR)
  Receive Date: 20220805
  Receipt Date: 20220805
  Transmission Date: 20221026
  Serious: Yes (Other)
  Sender: FDA-Public Use
  Company Number: FR-SUN PHARMACEUTICAL INDUSTRIES LTD-2022RR-347711

PATIENT
  Age: 78 Year
  Sex: Female

DRUGS (3)
  1. GEMCITABINE [Suspect]
     Active Substance: GEMCITABINE
     Indication: Breast cancer
     Dosage: CARBOPLATIN (AUC2)-GEMCITABINE (1000 MG/M2) ACCORDING TO THE REGIMEN D1, D8 WITH RESUMPTION ON D21
     Route: 065
  2. CARBOPLATIN [Suspect]
     Active Substance: CARBOPLATIN
     Indication: Breast cancer
     Dosage: CARBOPLATIN (AUC2)-GEMCITABINE (1000 MG/M2) ACCORDING TO THE REGIMEN D1, D8 WITH RESUMPTION ON D21
     Route: 065
  3. PEMBROLIZUMAB [Suspect]
     Active Substance: PEMBROLIZUMAB
     Indication: Breast cancer
     Dosage: 200 MILLIGRAM, 1 DOSE/3 WEEKS
     Route: 042

REACTIONS (2)
  - Haematotoxicity [Recovering/Resolving]
  - Neutropenia [Recovering/Resolving]
